FAERS Safety Report 9725199 (Version 1)
Quarter: 2013Q4

REPORT INFORMATION
  Report Type: Spontaneous
  Country: DK (occurrence: DK)
  Receive Date: 20131203
  Receipt Date: 20131203
  Transmission Date: 20140711
  Serious: Yes (Other)
  Sender: FDA-Public Use
  Company Number: DK-ASTRAZENECA-2013SE86618

PATIENT
  Age: 22817 Day
  Sex: Female
  Weight: 63.9 kg

DRUGS (2)
  1. SEROQUEL PROLONG [Suspect]
     Indication: DEPRESSION
     Route: 048
     Dates: start: 20130925
  2. VENLAFAXIN ^BLUEFISH^ [Concomitant]
     Indication: DEPRESSION
     Route: 048
     Dates: start: 20130906

REACTIONS (1)
  - Deep vein thrombosis [Not Recovered/Not Resolved]
